FAERS Safety Report 14762250 (Version 1)
Quarter: 2018Q2

REPORT INFORMATION
  Report Type: Spontaneous
  Country: US (occurrence: US)
  Receive Date: 20180416
  Receipt Date: 20180416
  Transmission Date: 20180711
  Serious: No
  Sender: FDA-Public Use
  Company Number: US-BION-006871

PATIENT
  Age: 72 Year
  Sex: Male
  Weight: 77.11 kg

DRUGS (2)
  1. GOODYS [Concomitant]
     Active Substance: ACETAMINOPHEN\ASPIRIN\CAFFEINE
     Dosage: TOOK JUST ABOUT EVERY DAY
  2. ALEVE [Suspect]
     Active Substance: NAPROXEN SODIUM
     Indication: PAIN
     Dosage: 2 SOFT GEL TWICE A DAY
     Route: 048
     Dates: start: 20171219

REACTIONS (2)
  - Incorrect dose administered [Not Recovered/Not Resolved]
  - Drug effect incomplete [Not Recovered/Not Resolved]

NARRATIVE: CASE EVENT DATE: 20171219
